FAERS Safety Report 4678199-1 (Version None)
Quarter: 2005Q2

REPORT INFORMATION
  Report Type: 
  Country: None (occurrence: None)
  Receive Date: 20050527
  Receipt Date: 20050519
  Transmission Date: 20051028
  Serious: Yes (Hospitalization)
  Sender: FDA-Public Use
  Company Number: MK200505-0229-1

PATIENT
  Age: 39 Year
  Sex: Female

DRUGS (7)
  1. ANAFRANIL [Suspect]
     Indication: OVERDOSE
     Dosage: 250MG, ONE TIME
     Dates: start: 20050411, end: 20050411
  2. SILECE [Suspect]
     Dosage: 60MG, ONE TIME DOSE
     Dates: start: 20050411, end: 20050411
  3. LENDORM [Suspect]
     Dosage: 22 TABLETS, ONE TIME DOSE
     Dates: start: 20050411, end: 20050411
  4. CERCINE [Suspect]
     Dosage: 50MG, ONE TIME DOSE
     Dates: start: 20050411, end: 20050411
  5. CONTOMIN (CHLORPROMAZINE HCL) [Concomitant]
  6. LEXOTAN [Concomitant]
  7. PURSENNID [Concomitant]

REACTIONS (7)
  - BLOOD ALKALINE PHOSPHATASE INCREASED [None]
  - BLOOD PRESSURE DECREASED [None]
  - DEPRESSED LEVEL OF CONSCIOUSNESS [None]
  - MULTIPLE DRUG OVERDOSE [None]
  - PROTHROMBIN TIME PROLONGED [None]
  - SUICIDE ATTEMPT [None]
  - THERAPEUTIC AGENT TOXICITY [None]
